FAERS Safety Report 8033429 (Version 2)
Quarter: 2012Q4

REPORT INFORMATION
  Report Type: 
  Country: US (occurrence: US)
  Receive Date: 20110713
  Receipt Date: 20121129
  Transmission Date: 20130627
  Serious: Yes (Hospitalization)
  Sender: FDA-Public Use
  Company Number: US-JNJFOC-20110703362

PATIENT
  Age: 34 Year
  Sex: Male

DRUGS (6)
  1. ACETAMINOPHEN [Suspect]
     Route: 048
  2. ACETAMINOPHEN [Suspect]
     Indication: PRODUCT USED FOR UNKNOWN INDICATION
     Dosage: 10 to 12.5 grams
     Route: 048
     Dates: start: 20070108
  3. ALBUTEROL [Concomitant]
     Indication: ASTHMA
     Dosage: 2 puffs
     Route: 065
     Dates: end: 20070107
  4. TRIAMCINOLONE [Concomitant]
     Indication: ASTHMA
     Dosage: 2 puffs
     Route: 055
     Dates: end: 20070107
  5. IBUPROFEN [Concomitant]
     Indication: MUSCULOSKELETAL PAIN
     Dosage: every other day
     Route: 065
     Dates: start: 20070106
  6. DIPHENHYDRAMINE [Concomitant]
     Indication: MULTIPLE ALLERGIES
     Dosage: every other day
     Route: 065
     Dates: start: 20070107

REACTIONS (1)
  - Intentional overdose [Unknown]
